FAERS Safety Report 6332119-2 (Version None)
Quarter: 2009Q3

REPORT INFORMATION
  Report Type: 
  Country: None (occurrence: None)
  Receive Date: 20090827
  Receipt Date: 20090827
  Transmission Date: 20100115
  Serious: Yes (Death)
  Sender: FDA-Public Use
  Company Number: None

PATIENT
  Age: 75 Year
  Sex: Female
  Weight: 54.4316 kg

DRUGS (2)
  1. DOXIL [Suspect]
     Indication: MULTIPLE MYELOMA
     Dates: start: 20090609, end: 20090609
  2. DOXIL [Suspect]
     Indication: MULTIPLE MYELOMA
     Dates: start: 20090709, end: 20090709

REACTIONS (1)
  - GENERAL PHYSICAL HEALTH DETERIORATION [None]
